FAERS Safety Report 8059199-0 (Version None)
Quarter: 2012Q1

REPORT INFORMATION
  Report Type: 
  Country: None (occurrence: None)
  Receive Date: 20120120
  Receipt Date: 20120117
  Transmission Date: 20120608
  Serious: No
  Sender: FDA-Public Use
  Company Number: US-PFIZER INC-2012013501

PATIENT
  Sex: Female
  Weight: 127 kg

DRUGS (6)
  1. FOLIC ACID [Concomitant]
     Dosage: UNK
  2. NEURONTIN [Suspect]
     Indication: PAIN IN EXTREMITY
     Dosage: UNK
     Route: 048
     Dates: start: 20111101, end: 20111101
  3. NEURONTIN [Suspect]
     Dosage: UNK
     Dates: start: 20111201, end: 20111201
  4. ROPINIROLE [Suspect]
     Indication: INSOMNIA
     Dosage: 3 MG, AS NEEDED
  5. NIACIN [Concomitant]
     Dosage: UNK
  6. NEURONTIN [Suspect]
     Indication: SCIATIC NERVE NEUROPATHY
     Dosage: 300 MG, DAILY
     Route: 048
     Dates: start: 20111001, end: 20111001

REACTIONS (5)
  - PAIN IN EXTREMITY [None]
  - HYPOAESTHESIA [None]
  - OEDEMA PERIPHERAL [None]
  - DRUG INEFFECTIVE [None]
  - BLOOD CHOLESTEROL INCREASED [None]
